FAERS Safety Report 5551067-9 (Version None)
Quarter: 2007Q4

REPORT INFORMATION
  Report Type: 
  Country: None (occurrence: None)
  Receive Date: 20071128
  Receipt Date: 20070228
  Transmission Date: 20080405
  Serious: Yes (Other)
  Sender: FDA-Public Use
  Company Number: 2007016108

PATIENT
  Age: 63 Year
  Sex: Male
  Weight: 120 kg

DRUGS (6)
  1. LIPITOR [Suspect]
     Indication: BLOOD CHOLESTEROL INCREASED
     Dosage: (DAILY), ORAL
     Route: 048
     Dates: end: 20070131
  2. ANDROGEL [Suspect]
     Dosage: (5 GRAM, DAILY), TRANSDERMAL
     Route: 062
     Dates: start: 20061201
  3. ASPIRIN [Concomitant]
  4. TOPROL-XL [Concomitant]
  5. BENICAR [Concomitant]
  6. ALLOPURINOL [Concomitant]

REACTIONS (2)
  - BLOOD PRESSURE INCREASED [None]
  - MYALGIA [None]
